FAERS Safety Report 6058256-8 (Version None)
Quarter: 2009Q1

REPORT INFORMATION
  Report Type: 
  Country: None (occurrence: None)
  Receive Date: 20090128
  Receipt Date: 20090128
  Transmission Date: 20090719
  Serious: Yes (Other)
  Sender: FDA-Public Use
  Company Number: None

PATIENT
  Sex: Female

DRUGS (5)
  1. LAMOTRIGINE [Suspect]
     Indication: BIPOLAR I DISORDER
     Dosage: (2) PO QD PO
     Route: 048
     Dates: start: 20071003
  2. ABILIFY [Concomitant]
  3. SEROQUEL [Concomitant]
  4. LEXAPRO [Concomitant]
  5. INDERAL 60 (LA) [Concomitant]

REACTIONS (5)
  - ANXIETY [None]
  - DEPRESSION [None]
  - MANIA [None]
  - TACHYPHRENIA [None]
  - THERAPEUTIC RESPONSE UNEXPECTED WITH DRUG SUBSTITUTION [None]
